FAERS Safety Report 25408423 (Version 1)
Quarter: 2025Q2

REPORT INFORMATION
  Report Type: Spontaneous
  Country: US (occurrence: US)
  Receive Date: 20250606
  Receipt Date: 20250606
  Transmission Date: 20250717
  Serious: Yes (Other)
  Sender: AMGEN
  Company Number: US-AMGEN-USASP2025108890

PATIENT
  Age: 51 Year
  Sex: Female

DRUGS (8)
  1. PREDNISONE [Suspect]
     Active Substance: PREDNISONE
     Indication: Immunosuppressant drug therapy
     Route: 065
  2. RITUXIMAB [Suspect]
     Active Substance: RITUXIMAB
     Indication: Donor specific antibody present
     Route: 065
  3. BORTEZOMIB [Concomitant]
     Active Substance: BORTEZOMIB
     Route: 065
  4. HUMAN IMMUNOGLOBULIN G [Concomitant]
     Active Substance: HUMAN IMMUNOGLOBULIN G
     Route: 065
  5. DARATUMUMAB [Concomitant]
     Active Substance: DARATUMUMAB
     Route: 065
  6. TACROLIMUS [Concomitant]
     Active Substance: TACROLIMUS
     Route: 065
  7. MYCOPHENOLATE MOFETIL [Concomitant]
     Active Substance: MYCOPHENOLATE MOFETIL
     Route: 065
  8. METHYLPREDNISOLONE [Concomitant]
     Active Substance: METHYLPREDNISOLONE

REACTIONS (4)
  - Transplant rejection [Unknown]
  - Donor specific antibody present [Unknown]
  - Drug effective for unapproved indication [Unknown]
  - Off label use [Unknown]
